FAERS Safety Report 9476607 (Version 1)
Quarter: 2013Q3

REPORT INFORMATION
  Report Type: Spontaneous
  Country: US (occurrence: None)
  Receive Date: 20130823
  Receipt Date: 20130823
  Transmission Date: 20140515
  Serious: Yes (Other)
  Sender: FDA-Public Use
  Company Number: None

PATIENT
  Age: 62 Year
  Sex: Male
  Weight: 88.45 kg

DRUGS (1)
  1. PLAQUENIL [Suspect]
     Indication: RHEUMATOID ARTHRITIS
     Dates: start: 20130729, end: 20130804

REACTIONS (10)
  - Cardiac failure congestive [None]
  - Hallucination [None]
  - Malaise [None]
  - Depression [None]
  - Suicidal ideation [None]
  - Hypoaesthesia [None]
  - Dyspnoea [None]
  - Choking [None]
  - Confusional state [None]
  - Local swelling [None]
